FAERS Safety Report 11822175 (Version 5)
Quarter: 2018Q3

REPORT INFORMATION
  Report Type: Spontaneous
  Country: US (occurrence: US)
  Receive Date: 20151210
  Receipt Date: 20180919
  Transmission Date: 20181010
  Serious: Yes (Other)
  Sender: FDA-Public Use
  Company Number: US-JNJFOC-20150807233

PATIENT
  Age: 77 Year
  Sex: Male

DRUGS (65)
  1. IMBRUVICA [Suspect]
     Active Substance: IBRUTINIB
     Indication: CHRONIC LYMPHOCYTIC LEUKAEMIA
     Route: 048
     Dates: start: 20161216
  2. IMBRUVICA [Suspect]
     Active Substance: IBRUTINIB
     Indication: THERAPY NAIVE
     Route: 048
     Dates: start: 20160408
  3. LISINOPRIL. [Concomitant]
     Active Substance: LISINOPRIL
     Dates: start: 20151218, end: 20160314
  4. LISINOPRIL. [Concomitant]
     Active Substance: LISINOPRIL
     Dates: end: 20150217
  5. LISINOPRIL. [Concomitant]
     Active Substance: LISINOPRIL
     Dates: start: 20140411, end: 20140411
  6. PARAPLATINE [Concomitant]
  7. ZESTRIL [Concomitant]
     Active Substance: LISINOPRIL
     Dates: start: 20140807, end: 20141014
  8. ZESTRIL [Concomitant]
     Active Substance: LISINOPRIL
     Dates: start: 20150921, end: 20160607
  9. TAMSULOSIN HYDROCHLORIDE. [Concomitant]
     Active Substance: TAMSULOSIN HYDROCHLORIDE
     Dates: start: 20170323
  10. IMBRUVICA [Suspect]
     Active Substance: IBRUTINIB
     Indication: THERAPY NAIVE
     Route: 048
     Dates: start: 20150109, end: 2015
  11. IMBRUVICA [Suspect]
     Active Substance: IBRUTINIB
     Indication: THERAPY NAIVE
     Route: 048
     Dates: start: 20150413, end: 20160312
  12. LISINOPRIL. [Concomitant]
     Active Substance: LISINOPRIL
     Dates: start: 20140707, end: 20140807
  13. GLUCOSAMINE [Concomitant]
     Active Substance: GLUCOSAMINE
  14. ZESTRIL [Concomitant]
     Active Substance: LISINOPRIL
     Dates: start: 20160919, end: 20170817
  15. BACTRIM DS [Concomitant]
     Active Substance: SULFAMETHOXAZOLE\TRIMETHOPRIM
     Dosage: 800?160 MG PER TABLET
  16. IMBRUVICA [Suspect]
     Active Substance: IBRUTINIB
     Indication: CHRONIC LYMPHOCYTIC LEUKAEMIA
     Route: 048
     Dates: start: 20150109, end: 2015
  17. IMBRUVICA [Suspect]
     Active Substance: IBRUTINIB
     Indication: THERAPY NAIVE
     Route: 048
     Dates: start: 20161216
  18. IMBRUVICA [Suspect]
     Active Substance: IBRUTINIB
     Indication: THERAPY NAIVE
     Route: 048
     Dates: start: 20141204, end: 20141204
  19. LISINOPRIL. [Concomitant]
     Active Substance: LISINOPRIL
     Dates: start: 20170217, end: 20170703
  20. LISINOPRIL. [Concomitant]
     Active Substance: LISINOPRIL
     Dates: start: 20160601, end: 20160607
  21. ZESTRIL [Concomitant]
     Active Substance: LISINOPRIL
  22. ZESTRIL [Concomitant]
     Active Substance: LISINOPRIL
     Dates: end: 20150720
  23. DITROPAN [Concomitant]
     Active Substance: OXYBUTYNIN CHLORIDE
  24. COLACE [Concomitant]
     Active Substance: DOCUSATE SODIUM
  25. PRILOSEC [Concomitant]
     Active Substance: OMEPRAZOLE MAGNESIUM
  26. HYDRALAZINE [Concomitant]
     Active Substance: HYDRALAZINE HYDROCHLORIDE
     Route: 048
  27. IMBRUVICA [Suspect]
     Active Substance: IBRUTINIB
     Indication: CHRONIC LYMPHOCYTIC LEUKAEMIA
     Route: 048
     Dates: start: 20141210, end: 20150109
  28. IMBRUVICA [Suspect]
     Active Substance: IBRUTINIB
     Indication: THERAPY NAIVE
     Route: 048
     Dates: start: 20141210, end: 20150109
  29. LISINOPRIL. [Concomitant]
     Active Substance: LISINOPRIL
     Dates: start: 20170817
  30. LISINOPRIL. [Concomitant]
     Active Substance: LISINOPRIL
     Dates: start: 20161020, end: 20161121
  31. LISINOPRIL. [Concomitant]
     Active Substance: LISINOPRIL
     Dates: start: 20150921, end: 20151217
  32. ASPIRIN. [Concomitant]
     Active Substance: ASPIRIN
  33. VITAMIN C [Concomitant]
     Active Substance: ASCORBIC ACID
  34. VITAMIN D [Concomitant]
     Active Substance: CHOLECALCIFEROL
  35. ZESTRIL [Concomitant]
     Active Substance: LISINOPRIL
     Dates: start: 20150318, end: 20150921
  36. ZESTRIL [Concomitant]
     Active Substance: LISINOPRIL
     Dates: start: 20170817
  37. DIFLUCAN [Concomitant]
     Active Substance: FLUCONAZOLE
     Dates: start: 20160506, end: 20170716
  38. MACROBID [Concomitant]
     Active Substance: NITROFURANTOIN\NITROFURANTOIN MONOHYDRATE
  39. ADVIL [Concomitant]
     Active Substance: IBUPROFEN
     Dates: start: 20170323
  40. ARANESP [Concomitant]
     Active Substance: DARBEPOETIN ALFA
     Dosage: 200 MCG, Q MONTHLY
  41. LISINOPRIL. [Concomitant]
     Active Substance: LISINOPRIL
     Dates: end: 20150720
  42. LISINOPRIL. [Concomitant]
     Active Substance: LISINOPRIL
     Dates: start: 20140411, end: 20140707
  43. ZESTRIL [Concomitant]
     Active Substance: LISINOPRIL
     Dates: end: 20150217
  44. LEVAQUIN [Concomitant]
     Active Substance: LEVOFLOXACIN
  45. TYLENOL [Concomitant]
     Active Substance: ACETAMINOPHEN
     Dosage: 500 MG, QD, BEDTIME
  46. LISINOPRIL. [Concomitant]
     Active Substance: LISINOPRIL
     Dates: start: 20161121, end: 20170217
  47. LISINOPRIL. [Concomitant]
     Active Substance: LISINOPRIL
     Dates: start: 20141007, end: 20150116
  48. GEMBAR [Concomitant]
  49. SENOKOT [Concomitant]
     Active Substance: SENNOSIDES
     Dates: start: 20151001
  50. INSULIN GLARGINE [Concomitant]
     Active Substance: INSULIN GLARGINE
     Dosage: 100 UNITS/ML
     Route: 058
  51. FLUCONAZOLE. [Concomitant]
     Active Substance: FLUCONAZOLE
     Route: 048
  52. IMBRUVICA [Suspect]
     Active Substance: IBRUTINIB
     Indication: CHRONIC LYMPHOCYTIC LEUKAEMIA
     Route: 048
     Dates: start: 20150413, end: 20160312
  53. LISINOPRIL. [Concomitant]
     Active Substance: LISINOPRIL
     Dates: start: 20170703, end: 20170817
  54. LISINOPRIL. [Concomitant]
     Active Substance: LISINOPRIL
     Dates: start: 20160919, end: 20161020
  55. LISINOPRIL. [Concomitant]
     Active Substance: LISINOPRIL
  56. LISINOPRIL. [Concomitant]
     Active Substance: LISINOPRIL
     Dates: start: 20150318, end: 20150921
  57. LISINOPRIL. [Concomitant]
     Active Substance: LISINOPRIL
     Dates: start: 20140807, end: 20141014
  58. LISINOPRIL. [Concomitant]
     Active Substance: LISINOPRIL
     Dates: start: 20130722, end: 20140411
  59. DOXYCYCLINE. [Concomitant]
     Active Substance: DOXYCYCLINE
     Dates: start: 20170707, end: 20170711
  60. CEFDINIR. [Concomitant]
     Active Substance: CEFDINIR
     Dates: start: 20170324, end: 20170403
  61. IMBRUVICA [Suspect]
     Active Substance: IBRUTINIB
     Indication: CHRONIC LYMPHOCYTIC LEUKAEMIA
     Route: 048
     Dates: start: 20141204, end: 20141204
  62. IMBRUVICA [Suspect]
     Active Substance: IBRUTINIB
     Indication: CHRONIC LYMPHOCYTIC LEUKAEMIA
     Route: 048
     Dates: start: 20160408
  63. ADVAIR HFA [Concomitant]
     Active Substance: FLUTICASONE PROPIONATE\SALMETEROL XINAFOATE
     Dosage: 250?50 MCG, 1 PUFF, INHALE BID
  64. CIPROFLOXACIN. [Concomitant]
     Active Substance: CIPROFLOXACIN
     Dates: start: 20170601, end: 20170615
  65. NORCO [Concomitant]
     Active Substance: ACETAMINOPHEN\HYDROCODONE BITARTRATE
     Dosage: 5?325 MG

REACTIONS (6)
  - Aphasia [Recovered/Resolved]
  - Constipation [Unknown]
  - Urethral disorder [Unknown]
  - Haematuria [Recovered/Resolved]
  - Transitional cell carcinoma [Unknown]
  - Gait disturbance [Recovered/Resolved]

NARRATIVE: CASE EVENT DATE: 2015
